FAERS Safety Report 13463307 (Version 1)
Quarter: 2017Q2

REPORT INFORMATION
  Report Type: Spontaneous
  Country: JP (occurrence: US)
  Receive Date: 20170420
  Receipt Date: 20170420
  Transmission Date: 20170830
  Serious: Yes (Other)
  Sender: FDA-Public Use
  Company Number: JP-CORDEN PHARMA LATINA S.P.A.-US-2017COR000104

PATIENT
  Age: 66 Year
  Sex: Female

DRUGS (7)
  1. PACLITAXEL. [Suspect]
     Active Substance: PACLITAXEL
     Dosage: UNK, 3 COURSES WITH CARBOPLATIN
     Route: 042
  2. IFOSFAMIDE. [Concomitant]
     Active Substance: IFOSFAMIDE
     Dosage: 1200 MG/M2, TWO COURSES (DAY 1-3)
     Route: 042
  3. SODIUM [Concomitant]
     Active Substance: SODIUM
     Indication: PRODUCT USED FOR UNKNOWN INDICATION
     Dosage: UNK
     Route: 048
  4. CARBOPLATIN. [Suspect]
     Active Substance: CARBOPLATIN
     Indication: URETHRAL CANCER METASTATIC
     Dosage: UNK, 3 COURSES
  5. IFOSFAMIDE. [Concomitant]
     Active Substance: IFOSFAMIDE
     Indication: URETHRAL CANCER METASTATIC
     Dosage: 1200 MG/M2, FIRST COURSE (DAY 1-3)
     Route: 042
  6. PACLITAXEL. [Suspect]
     Active Substance: PACLITAXEL
     Dosage: 175 MG/M2, TWO COURSES
     Route: 042
  7. PACLITAXEL. [Suspect]
     Active Substance: PACLITAXEL
     Indication: URETHRAL CANCER METASTATIC
     Dosage: 175 MG/M2, SINGLE (DAY 1)
     Route: 042

REACTIONS (1)
  - Inappropriate antidiuretic hormone secretion [Unknown]
